FAERS Safety Report 8270204-9 (Version None)
Quarter: 2012Q2

REPORT INFORMATION
  Report Type: 
  Country: None (occurrence: None)
  Receive Date: 20120410
  Receipt Date: 20120406
  Transmission Date: 20120825
  Serious: Yes (Other)
  Sender: FDA-Public Use
  Company Number: PHHY2012KR029678

PATIENT
  Sex: Female

DRUGS (2)
  1. GLEEVEC [Suspect]
     Dosage: 400 MG/ DAY
     Route: 048
     Dates: start: 20120301
  2. GLEEVEC [Suspect]
     Indication: GASTROINTESTINAL STROMAL TUMOUR
     Dosage: 600 MG/ DAY
     Route: 048
     Dates: start: 20080214, end: 20120322

REACTIONS (2)
  - GASTRIC CANCER [None]
  - NEOPLASM MALIGNANT [None]
